FAERS Safety Report 20057721 (Version 1)
Quarter: 2021Q4

REPORT INFORMATION
  Report Type: Spontaneous
  Country: US (occurrence: None)
  Receive Date: 20211110
  Receipt Date: 20211110
  Transmission Date: 20220304
  Serious: No
  Sender: FDA-Public Use
  Company Number: None

PATIENT
  Age: 33 Year
  Sex: Female
  Weight: 128.37 kg

DRUGS (1)
  1. HUMIRA [Suspect]
     Active Substance: ADALIMUMAB
     Indication: Psoriasis
     Dosage: INJECT 80MG (1 PEN) SUBCUTANEOUSLY ON DAY 1, 40MG (1 PEN) ON DAY 8,  THEN 40MG EVERY OTHER WEEK AS
     Route: 058
     Dates: start: 202101

REACTIONS (2)
  - Pregnancy [None]
  - Exposure during pregnancy [None]
